FAERS Safety Report 12013106 (Version 2)
Quarter: 2016Q4

REPORT INFORMATION
  Report Type: Spontaneous
  Country: US (occurrence: US)
  Receive Date: 20160205
  Receipt Date: 20161011
  Transmission Date: 20170206
  Serious: No
  Sender: FDA-Public Use
  Company Number: US-BIOGEN-2016BI00184826

PATIENT
  Sex: Female

DRUGS (3)
  1. AVONEX [Suspect]
     Active Substance: INTERFERON BETA-1A
     Indication: MULTIPLE SCLEROSIS
     Route: 065
     Dates: start: 20060701
  2. AVONEX [Suspect]
     Active Substance: INTERFERON BETA-1A
     Route: 065
     Dates: start: 20060623, end: 20130705
  3. AVONEX [Suspect]
     Active Substance: INTERFERON BETA-1A
     Route: 065
     Dates: start: 20130724

REACTIONS (12)
  - Haemorrhage [Unknown]
  - Anxiety [Not Recovered/Not Resolved]
  - Liver disorder [Not Recovered/Not Resolved]
  - Dysarthria [Unknown]
  - Diplopia [Unknown]
  - Influenza like illness [Unknown]
  - Dizziness [Unknown]
  - Amnesia [Unknown]
  - Dry mouth [Recovered/Resolved]
  - Headache [Unknown]
  - Hypoaesthesia [Unknown]
  - Asthenia [Unknown]
